FAERS Safety Report 24066819 (Version 1)
Quarter: 2024Q3

REPORT INFORMATION
  Report Type: Spontaneous
  Country: US (occurrence: None)
  Receive Date: 20240709
  Receipt Date: 20240709
  Transmission Date: 20241016
  Serious: Yes (Disabling)
  Sender: Public
  Company Number: None

PATIENT
  Age: 85 Year
  Weight: 77.11 kg

DRUGS (5)
  1. BREZTRI [Suspect]
     Active Substance: BUDESONIDE\FORMOTEROL\GLYCOPYRROLATE
     Indication: Product used for unknown indication
     Dosage: OTHER QUANTITY : FOUR PUFFS;?
     Route: 048
     Dates: start: 202404
  2. ZINC [Concomitant]
     Active Substance: ZINC
  3. MAGNESIUM [Concomitant]
     Active Substance: MAGNESIUM
  4. COMPLETE MULTIVITAMINS [Concomitant]
  5. MELATONIN [Concomitant]
     Active Substance: MELATONIN

REACTIONS (1)
  - Dizziness [None]

NARRATIVE: CASE EVENT DATE: 20240401
